FAERS Safety Report 20707115 (Version 1)
Quarter: 2022Q2

REPORT INFORMATION
  Report Type: Spontaneous
  Country: HR (occurrence: HR)
  Receive Date: 20220413
  Receipt Date: 20220413
  Transmission Date: 20220721
  Serious: Yes (Other)
  Sender: FDA-Public Use
  Company Number: None

PATIENT
  Sex: Female

DRUGS (2)
  1. OXAZEPAM [Suspect]
     Active Substance: OXAZEPAM
     Dosage: UNIT DOSE: 225 MG, FREQUENCY TIME- 1 DAY, DURATION-1 DAYS
     Route: 048
     Dates: start: 20211220, end: 20211220
  2. LERCANIDIPINE HYDROCHLORIDE [Suspect]
     Active Substance: LERCANIDIPINE HYDROCHLORIDE
     Dosage: UNIT DOSE: 300 MG, FREQUENCY TIME- 1 DAY, DURATION-1 DAYS
     Route: 048
     Dates: start: 20211220, end: 20211220

REACTIONS (3)
  - Somnolence [Unknown]
  - Suicide attempt [Unknown]
  - Intentional overdose [Unknown]

NARRATIVE: CASE EVENT DATE: 20211220
